FAERS Safety Report 22155707 (Version 2)
Quarter: 2024Q1

REPORT INFORMATION
  Report Type: Spontaneous
  Country: US (occurrence: US)
  Receive Date: 20230330
  Receipt Date: 20240111
  Transmission Date: 20240410
  Serious: Yes (Other)
  Sender: FDA-Public Use
  Company Number: US-BRISTOL-MYERS SQUIBB COMPANY-2023-043773

PATIENT
  Age: 72 Year
  Sex: Male

DRUGS (2)
  1. REVLIMID [Suspect]
     Active Substance: LENALIDOMIDE
     Indication: Plasma cell myeloma
     Route: 048
     Dates: start: 20180309
  2. REVLIMID [Suspect]
     Active Substance: LENALIDOMIDE
     Dosage: TAKE 1 CAPSULE (10MG) BY MOUTH WHOLE WITH WATER EVERY DAY FOR 21 DAYS, THEN 7 DAYS OFF. DO NOT BREAK
     Route: 048

REACTIONS (4)
  - Depression [Unknown]
  - Headache [Unknown]
  - Fatigue [Unknown]
  - Product dose omission issue [Unknown]
